FAERS Safety Report 8387209-X (Version None)
Quarter: 2012Q2

REPORT INFORMATION
  Report Type: 
  Country: None (occurrence: None)
  Receive Date: 20120525
  Receipt Date: 20120521
  Transmission Date: 20120825
  Serious: Yes (Hospitalization, Other)
  Sender: FDA-Public Use
  Company Number: ES-PFIZER INC-2011293220

PATIENT
  Age: 57 Year
  Sex: Male

DRUGS (12)
  1. DOLANTINA [Interacting]
     Indication: ANALGESIC THERAPY
  2. ANIDULAFUNGIN [Concomitant]
     Dosage: 100 MG, 1X/DAY
  3. ENOXAPARIN [Concomitant]
     Dosage: 40 MG/24HR
  4. ACTRAPID [Concomitant]
     Dosage: 50 IU, DAILY
  5. MIDAZOLAM [Concomitant]
     Indication: HYPOVENTILATION
     Dosage: 7 MG, UNK
  6. AMIKACIN [Concomitant]
     Dosage: 1.2 G/24 HOURS
  7. ZYVOX [Interacting]
     Indication: PLEURAL INFECTION
  8. DOLANTINA [Interacting]
     Indication: POSTOPERATIVE ANALGESIA
     Dosage: 15 MG, HOUR
     Route: 041
     Dates: start: 20110802, end: 20110813
  9. MEPERIDINE HCL [Concomitant]
     Indication: ANALGESIC THERAPY
     Dosage: 15 MG/H
     Route: 041
  10. MEROPENEM [Concomitant]
     Dosage: 1 G, 3X/DAY
     Route: 042
  11. PROPOFOL [Concomitant]
     Dosage: 300 MG/HOUR
  12. ZYVOX [Suspect]
     Indication: ENTEROCOCCAL BACTERAEMIA
     Dosage: 600 MG, 2X/DAY
     Route: 042
     Dates: start: 20110811, end: 20110813

REACTIONS (2)
  - SEROTONIN SYNDROME [None]
  - DRUG INTERACTION [None]
